FAERS Safety Report 19134561 (Version 1)
Quarter: 2021Q2

REPORT INFORMATION
  Report Type: Spontaneous
  Country: US (occurrence: US)
  Receive Date: 20210414
  Receipt Date: 20210414
  Transmission Date: 20210717
  Serious: No
  Sender: FDA-Public Use
  Company Number: None

PATIENT
  Age: 9 Year
  Sex: Male
  Weight: 27.45 kg

DRUGS (2)
  1. VYVANSE [Suspect]
     Active Substance: LISDEXAMFETAMINE DIMESYLATE
     Indication: ATTENTION DEFICIT HYPERACTIVITY DISORDER
     Dates: start: 20210413, end: 20210413
  2. VYVANSE CAPSULE 30 MG [Concomitant]
     Dates: start: 20210413, end: 20210413

REACTIONS (2)
  - Tic [None]
  - Vision blurred [None]

NARRATIVE: CASE EVENT DATE: 20210413
